FAERS Safety Report 18923478 (Version 1)
Quarter: 2021Q1

REPORT INFORMATION
  Report Type: Spontaneous
  Country: US (occurrence: US)
  Receive Date: 20210222
  Receipt Date: 20210222
  Transmission Date: 20210420
  Serious: Yes (Other)
  Sender: FDA-Public Use
  Company Number: US-BAYER-2021-074793

PATIENT

DRUGS (1)
  1. KYLEENA [Suspect]
     Active Substance: LEVONORGESTREL
     Dosage: 17.5 ?G PER DAY ,CONTINOUSLY
     Route: 064
     Dates: start: 20170718

REACTIONS (3)
  - Premature baby [None]
  - Foetal disorder [None]
  - Foetal exposure during pregnancy [None]
